FAERS Safety Report 10657543 (Version 1)
Quarter: 2014Q4

REPORT INFORMATION
  Report Type: Spontaneous
  Country: US (occurrence: None)
  Receive Date: 20141215
  Receipt Date: 20141215
  Transmission Date: 20150529
  Serious: Yes (Hospitalization)
  Sender: FDA-Public Use
  Company Number: INT_00535_2014

PATIENT
  Age: 44 Year
  Sex: Male

DRUGS (2)
  1. CISPLATIN (HQ SPECIALTY) [Suspect]
     Active Substance: CISPLATIN
     Indication: PANCREATIC CARCINOMA METASTATIC
     Dosage: [ON DAYS 1 AND 15 OF EACH 4-WEEK CYCLE])
  2. GEMCITABINE [Suspect]
     Active Substance: GEMCITABINE\GEMCITABINE HYDROCHLORIDE
     Indication: PANCREATIC CARCINOMA METASTATIC
     Dosage: [ON DAYS 1, 8 AND 15 OF EACH 4-WEEK CYCLE])

REACTIONS (8)
  - Aortic dissection [None]
  - Cough [None]
  - Pleural effusion [None]
  - Dyspnoea [None]
  - Blood pressure increased [None]
  - Atelectasis [None]
  - Asthenia [None]
  - Pain [None]
